FAERS Safety Report 16258369 (Version 2)
Quarter: 2019Q2

REPORT INFORMATION
  Report Type: Report from Study
  Country: BE (occurrence: BE)
  Receive Date: 20190430
  Receipt Date: 20190520
  Transmission Date: 20190711
  Serious: No
  Sender: FDA-Public Use
  Company Number: BE-TAKEDA-2019TUS026131

PATIENT
  Sex: Female

DRUGS (1)
  1. VEDOLIZUMAB [Suspect]
     Active Substance: VEDOLIZUMAB
     Indication: INFLAMMATORY BOWEL DISEASE
     Dosage: UNK
     Route: 042
     Dates: start: 20190206

REACTIONS (2)
  - Trapeziectomy [Recovered/Resolved]
  - Ligament operation [Recovered/Resolved]

NARRATIVE: CASE EVENT DATE: 20190212
